FAERS Safety Report 6118779-X (Version None)
Quarter: 2009Q1

REPORT INFORMATION
  Report Type: 
  Country: None (occurrence: None)
  Receive Date: 20090314
  Receipt Date: 20090227
  Transmission Date: 20090719
  Serious: No
  Sender: FDA-Public Use
  Company Number: US-ABBOTT-09P-163-0559788-00

PATIENT
  Sex: Female
  Weight: 108.96 kg

DRUGS (10)
  1. HUMIRA [Suspect]
     Indication: COLITIS ULCERATIVE
     Dates: start: 20080201
  2. HUMIRA [Suspect]
     Indication: RHEUMATOID ARTHRITIS
  3. HUMIRA [Suspect]
     Indication: ANKYLOSING SPONDYLITIS
  4. DIOVAN HCT [Concomitant]
     Indication: HYPERTENSION
     Dosage: 160/25 MG, ORAL, 2 IN 1 DAY
  5. SELODAPINE [Concomitant]
     Indication: HYPERTENSION
  6. PREDNISONE [Concomitant]
     Indication: RHEUMATOID ARTHRITIS
     Route: 048
  7. PREDNISONE [Concomitant]
     Indication: COLITIS ULCERATIVE
  8. PROTONIX [Concomitant]
     Indication: GASTROOESOPHAGEAL REFLUX DISEASE
     Route: 048
  9. PERCOCET [Concomitant]
     Indication: PAIN
     Dosage: 5/325 MG 2 TAB EVERY 4-6 HRS AS NEEDED
     Route: 048
  10. ZANAFLEX [Concomitant]
     Indication: MUSCLE SPASMS
     Route: 048

REACTIONS (1)
  - INJECTION SITE IRRITATION [None]
